FAERS Safety Report 6546788-5 (Version None)
Quarter: 2010Q1

REPORT INFORMATION
  Report Type: 
  Country: None (occurrence: None)
  Receive Date: 20100119
  Receipt Date: 20100104
  Transmission Date: 20100710
  Serious: Yes (Death)
  Sender: FDA-Public Use
  Company Number: 2010AC000008

PATIENT
  Age: 58 Year
  Sex: Female

DRUGS (16)
  1. DIGOXIN [Suspect]
     Dosage: .25 MG; QD; PO
     Route: 048
     Dates: start: 20070719
  2. ESTRASET H.S. [Concomitant]
  3. ARAVA [Concomitant]
  4. PREDNISONE [Concomitant]
  5. HYDROXYCHLORQUINE [Concomitant]
  6. MELOXICAM [Concomitant]
  7. LEFLUNOMIDE [Concomitant]
  8. BENICAR [Concomitant]
  9. DICLOFENAC SODIUM [Concomitant]
  10. PLAQUENIL [Concomitant]
  11. BENICAR [Concomitant]
  12. PREDNISONE [Concomitant]
  13. ESTRATEST [Concomitant]
  14. ESTRATEST [Concomitant]
  15. LEFLUNOMIDE [Concomitant]
  16. DICYCLOPHENAC [Concomitant]

REACTIONS (7)
  - ANXIETY [None]
  - CARDIOVASCULAR DISORDER [None]
  - ECONOMIC PROBLEM [None]
  - INJURY [None]
  - PAIN [None]
  - THERAPEUTIC AGENT TOXICITY [None]
  - UNEVALUABLE EVENT [None]
